FAERS Safety Report 6250794-8 (Version None)
Quarter: 2009Q2

REPORT INFORMATION
  Report Type: 
  Country: None (occurrence: None)
  Receive Date: 20090626
  Receipt Date: 20090615
  Transmission Date: 20091009
  Serious: Yes (Other)
  Sender: FDA-Public Use
  Company Number: THQ2009A03081

PATIENT
  Age: 68 Year
  Sex: Male

DRUGS (5)
  1. ACTOS [Suspect]
     Indication: TYPE 2 DIABETES MELLITUS
     Dosage: PER ORAL
     Route: 048
     Dates: start: 20081101
  2. BRIMONIDINE TARTRATE [Concomitant]
  3. NORVASC /00972401/ (AMLODIPINE) [Concomitant]
  4. AVALIDE (IRBESARTAN, HYDROCHLOROTHIAZIDE) (HYDROCHLOROTHIAZIDE, IRBESA [Concomitant]
  5. COSOPT (DORZOLAMIDE HYDROCHLORIDE, TIMOLOL MALEATE) (TIMOLOL MALEATE, [Concomitant]

REACTIONS (2)
  - DISEASE PROGRESSION [None]
  - GLAUCOMA [None]
